FAERS Safety Report 21359794 (Version 1)
Quarter: 2022Q3

REPORT INFORMATION
  Report Type: Spontaneous
  Country: DE (occurrence: DE)
  Receive Date: 20220921
  Receipt Date: 20220921
  Transmission Date: 20221027
  Serious: Yes (Hospitalization)
  Sender: FDA-Public Use
  Company Number: DE-NOVARTISPH-NVSC2022DE208505

PATIENT
  Age: 64 Year
  Sex: Male
  Weight: 85 kg

DRUGS (10)
  1. METOPROLOL [Suspect]
     Active Substance: METOPROLOL
     Indication: Product used for unknown indication
     Dosage: 95 MG, TID (95 MG, 1-1-1-0)
     Route: 065
  2. JANUMET [Concomitant]
     Active Substance: METFORMIN HYDROCHLORIDE\SITAGLIPTIN PHOSPHATE
     Indication: Product used for unknown indication
     Dosage: UNK UNK, QD (1000|50 MG, 0-1-0-0 )
     Route: 065
  3. METFORMIN [Concomitant]
     Active Substance: METFORMIN HYDROCHLORIDE
     Indication: Product used for unknown indication
     Dosage: 1000 MG, BID (1000 MG, 1-0-1-0)
     Route: 065
  4. ASPIRIN [Concomitant]
     Active Substance: ASPIRIN
     Indication: Product used for unknown indication
     Dosage: 100 MG, QD (100 MG, 0-1-0-0)
     Route: 065
  5. SIMVASTATIN [Concomitant]
     Active Substance: SIMVASTATIN
     Indication: Product used for unknown indication
     Dosage: 20 MG, QD (20 MG, 0-1-0-0)
     Route: 065
  6. PREGABALIN [Concomitant]
     Active Substance: PREGABALIN
     Indication: Product used for unknown indication
     Dosage: 75 MG, BID (75 MG, 1-0-1-0)
     Route: 065
  7. ZOLPIDEM [Concomitant]
     Active Substance: ZOLPIDEM TARTRATE
     Indication: Product used for unknown indication
     Dosage: 5 MG (5 MG, BEDARF)
     Route: 065
  8. REPAGLINIDE [Concomitant]
     Active Substance: REPAGLINIDE
     Indication: Product used for unknown indication
     Dosage: 0.5 MG, QD (0.5 MG, 1-0-0-0)
     Route: 065
  9. METAMIZOL [Concomitant]
     Active Substance: METAMIZOLE SODIUM
     Indication: Product used for unknown indication
     Dosage: 500 MG, QID (500 MG, 1-1-1-1)
     Route: 065
  10. HYDROCHLOROTHIAZIDE\RAMIPRIL [Concomitant]
     Active Substance: HYDROCHLOROTHIAZIDE\RAMIPRIL
     Indication: Product used for unknown indication
     Dosage: UNK UNK, BID (12.5|5 MG, 1-1-0-0)
     Route: 065

REACTIONS (3)
  - Pain in extremity [Unknown]
  - Musculoskeletal pain [Unknown]
  - Pain [Unknown]
